FAERS Safety Report 6739552-5 (Version None)
Quarter: 2010Q2

REPORT INFORMATION
  Report Type: 
  Country: None (occurrence: None)
  Receive Date: 20100521
  Receipt Date: 20100510
  Transmission Date: 20101027
  Serious: Yes (Other)
  Sender: FDA-Public Use
  Company Number: 430001M10USA

PATIENT
  Age: 59 Year
  Sex: Female

DRUGS (1)
  1. NOVANTRONE [Suspect]
     Indication: DRUG USE FOR UNKNOWN INDICATION
     Dates: start: 20091012, end: 20100101

REACTIONS (1)
  - ARRHYTHMIA [None]
